FAERS Safety Report 17717178 (Version 1)
Quarter: 2020Q2

REPORT INFORMATION
  Report Type: Spontaneous
  Country: US (occurrence: US)
  Receive Date: 20200428
  Receipt Date: 20200428
  Transmission Date: 20200714
  Serious: Yes (Hospitalization, Other)
  Sender: FDA-Public Use
  Company Number: US-EMCURE PHARMACEUTICALS LTD-2020-EPL-000473

PATIENT
  Age: 56 Year
  Sex: Female

DRUGS (3)
  1. GEMCITABINE HYDROCHLORIDE. [Suspect]
     Active Substance: GEMCITABINE HYDROCHLORIDE
     Indication: PANCREATIC CARCINOMA
     Dosage: ON DAYS 1, 8 AND 15 OF EACH 28 DAY CYCLE
  2. GEMCITABINE HYDROCHLORIDE. [Suspect]
     Active Substance: GEMCITABINE HYDROCHLORIDE
     Dosage: CYCLE 3, DAY 1
     Dates: start: 201604
  3. 5-FLUOROURACIL [Concomitant]
     Active Substance: FLUOROURACIL
     Indication: PANCREATIC CARCINOMA
     Dosage: CONTINUOUS INFUSION

REACTIONS (5)
  - Pericardial effusion [Recovering/Resolving]
  - Capillary leak syndrome [Recovering/Resolving]
  - Generalised oedema [Recovering/Resolving]
  - Ascites [Recovering/Resolving]
  - Pleural effusion [Recovering/Resolving]
